FAERS Safety Report 8021727-9 (Version None)
Quarter: 2012Q1

REPORT INFORMATION
  Report Type: 
  Country: None (occurrence: None)
  Receive Date: 20120104
  Receipt Date: 20111230
  Transmission Date: 20120608
  Serious: No
  Sender: FDA-Public Use
  Company Number: US-B.I. PHARMACEUTICALS,INC./RIDGEFIELD-2010-BP-15076BP

PATIENT
  Sex: Male

DRUGS (9)
  1. FINASTERIDE [Concomitant]
     Indication: BENIGN PROSTATIC HYPERPLASIA
     Dosage: 5 MG
     Route: 048
     Dates: start: 20060101
  2. SIMVASTATIN [Concomitant]
     Indication: BLOOD CHOLESTEROL INCREASED
     Dosage: 20 MG
     Route: 048
     Dates: start: 20060101
  3. COREG [Concomitant]
     Indication: HYPERTENSION
     Dosage: 20 MG
     Route: 048
     Dates: start: 20070101
  4. OMEPRAZOLE [Concomitant]
     Indication: GASTROOESOPHAGEAL REFLUX DISEASE
     Dosage: 20 MG
     Route: 048
     Dates: start: 20090101
  5. PRADAXA [Suspect]
     Indication: ATRIAL FIBRILLATION
     Dosage: 300 MG
     Route: 048
     Dates: start: 20101001
  6. CELEXA [Concomitant]
     Indication: DEPRESSION
     Dosage: 40 MG
     Route: 048
     Dates: start: 20030101
  7. METFORMIN HCL [Concomitant]
     Indication: DIABETES MELLITUS
     Dosage: 1000 MG
     Route: 048
     Dates: start: 20060101
  8. FUROSEMIDE [Concomitant]
     Indication: FLUID RETENTION
     Dosage: 80 MG
     Route: 048
     Dates: start: 19800101
  9. KLOR-CON [Concomitant]
     Indication: FLUID RETENTION
     Dosage: 20 MEQ
     Route: 048
     Dates: start: 19800101

REACTIONS (7)
  - DIARRHOEA [None]
  - SWELLING FACE [None]
  - VOMITING [None]
  - ABDOMINAL DISCOMFORT [None]
  - CHILLS [None]
  - ERYTHEMA [None]
  - PRURITUS [None]
